FAERS Safety Report 16841413 (Version 1)
Quarter: 2019Q3

REPORT INFORMATION
  Report Type: Report from Study
  Country: US (occurrence: US)
  Receive Date: 20190923
  Receipt Date: 20190923
  Transmission Date: 20191005
  Serious: Yes (Other)
  Sender: FDA-Public Use
  Company Number: US-GLAXOSMITHKLINE-2019-TSO01949-US

PATIENT
  Age: 64 Year
  Sex: Female
  Weight: 124.67 kg

DRUGS (2)
  1. NIRAPARIB [Suspect]
     Active Substance: NIRAPARIB
     Dosage: 300 MG, QD
     Route: 048
     Dates: start: 20190510
  2. NIRAPARIB [Suspect]
     Active Substance: NIRAPARIB
     Dosage: 100 MG, QPM WITH FOOD
     Route: 048
     Dates: start: 20190613

REACTIONS (10)
  - Dehydration [Not Recovered/Not Resolved]
  - Renal impairment [Unknown]
  - Malaise [Unknown]
  - Chills [Unknown]
  - Product dose omission [Unknown]
  - Fungal infection [Unknown]
  - Headache [Not Recovered/Not Resolved]
  - Nausea [Not Recovered/Not Resolved]
  - Blood glucose increased [Unknown]
  - Dry mouth [Unknown]

NARRATIVE: CASE EVENT DATE: 201909
